FAERS Safety Report 11472097 (Version 5)
Quarter: 2017Q4

REPORT INFORMATION
  Report Type: Spontaneous
  Country: US (occurrence: US)
  Receive Date: 20150908
  Receipt Date: 20171123
  Transmission Date: 20180320
  Serious: No
  Sender: FDA-Public Use
  Company Number: US-PFIZER INC-2015293312

PATIENT
  Age: 61 Year
  Sex: Female

DRUGS (34)
  1. TIZANIDINE. [Concomitant]
     Active Substance: TIZANIDINE
     Dosage: UNK, AS NEEDED (1/2-1 DAILY)
     Route: 048
     Dates: start: 20140110
  2. VITAMIN D3 [Concomitant]
     Active Substance: CHOLECALCIFEROL
     Dosage: 2000 IU, 2X/DAY
     Route: 060
  3. METOPROLOL SUCCINATE. [Concomitant]
     Active Substance: METOPROLOL SUCCINATE
     Dosage: 25 MG, DAILY
     Route: 048
     Dates: start: 20160107
  4. VIACTIV [Concomitant]
     Active Substance: CALCIUM\VITAMIN D\VITAMIN K5
     Dosage: UNK
  5. HYDROCODONE/ACETAMINOPHEN [Concomitant]
     Active Substance: ACETAMINOPHEN\HYDROCODONE
     Indication: PAIN
     Dosage: 1 DF, DAILY (HYDROCODONE BITARTRATE: 5 MG, PARACETAMOL: 325 MG)
     Dates: start: 201411
  6. QVAR [Concomitant]
     Active Substance: BECLOMETHASONE DIPROPIONATE
     Dosage: UNK (INHALE 2 PUFFS BY MOUTH TWICE A DAY)
     Route: 055
     Dates: start: 20150722
  7. TRAMADOL. [Concomitant]
     Active Substance: TRAMADOL
     Indication: PAIN
  8. QVAR [Concomitant]
     Active Substance: BECLOMETHASONE DIPROPIONATE
     Dosage: 2 DF, 2X/DAY AS NEEDED
     Route: 045
  9. MIRALAX [Concomitant]
     Active Substance: POLYETHYLENE GLYCOL 3350
     Dosage: UNK
     Route: 048
  10. PROAIR HFA [Concomitant]
     Active Substance: ALBUTEROL SULFATE
     Dosage: UNK, AS NEEDED (TWO PUFFS BY MOUTH EVERY 4 HOURS)
     Route: 055
     Dates: start: 20140508
  11. TRAMADOL. [Concomitant]
     Active Substance: TRAMADOL
     Indication: BACK PAIN
     Dosage: 300 MG, DAILY
     Route: 048
     Dates: start: 1991
  12. CURAMIN [Concomitant]
     Active Substance: HERBALS
     Dosage: 2 DF, 2X/DAY
  13. ALBUTEROL. [Concomitant]
     Active Substance: ALBUTEROL
     Dosage: 2 DF, AS NEEDED
  14. OXYBUTYNIN CHLORIDE. [Concomitant]
     Active Substance: OXYBUTYNIN CHLORIDE
     Dosage: 5 MG, 2X/DAY
     Route: 048
     Dates: start: 20140925
  15. TIZANIDINE. [Concomitant]
     Active Substance: TIZANIDINE
     Indication: MUSCLE SPASMS
     Dosage: 2 MG, AS NEEDED, AT NIGHT
  16. COQ 10 [Concomitant]
     Active Substance: UBIDECARENONE
     Dosage: UNK, 2X/DAY (INHALE 2 PUFFS BY MOUTH TWICE A DAY)
     Route: 048
     Dates: start: 20150722
  17. ALBUTEROL. [Concomitant]
     Active Substance: ALBUTEROL
     Dosage: UNK, AS NEEDED (EVERY 4 HOURS, 2.5 MG/3 ML)
     Route: 055
     Dates: start: 20160715
  18. PLANT STEROLS [Concomitant]
     Dosage: UNK
  19. VITAMIN B12 [Concomitant]
     Active Substance: CYANOCOBALAMIN
     Dosage: 2500 UG, UNK
     Route: 060
  20. ZYRTEC [Concomitant]
     Active Substance: CETIRIZINE HYDROCHLORIDE
     Dosage: 10 MG, DAILY
     Route: 048
     Dates: start: 20160810
  21. DEPO-ESTRADIOL [Suspect]
     Active Substance: ESTRADIOL CYPIONATE
     Indication: HYSTERECTOMY
     Dosage: 5 MG, MONTHLY
     Route: 030
  22. COQ 10 [Concomitant]
     Active Substance: UBIDECARENONE
     Dosage: 100 MG, UNK
     Route: 048
  23. VITAMIN B COMPLEX [Concomitant]
     Active Substance: CYANOCOBALAMIN\DEXPANTHENOL\NIACINAMIDE\PYRIDOXINE HYDROCHLORIDE\RIBOFLAVIN 5^-PHOSPHATE SODIUM\THIAMINE HYDROCHLORIDE\VITAMIN B COMPLEX
     Dosage: UNK, DAILY
     Route: 060
  24. AMITRIPTYLINE HCL [Concomitant]
     Active Substance: AMITRIPTYLINE
     Indication: INSOMNIA
     Dosage: UNK, AS NEEDED (1/2 TO 1 TAB AT BEDTIME)
     Route: 048
     Dates: start: 20160520
  25. AMITRIPTYLINE HCL [Concomitant]
     Active Substance: AMITRIPTYLINE
     Indication: PAIN
  26. VITAMIN D [Concomitant]
     Active Substance: CHOLECALCIFEROL
     Dosage: 50000 IU, WEEKLY
     Route: 048
     Dates: start: 20160222
  27. COQ 10 [Concomitant]
     Active Substance: UBIDECARENONE
     Dosage: 1 DF, DAILY
  28. VITAMIN D3 [Concomitant]
     Active Substance: CHOLECALCIFEROL
     Dosage: 5000 IU, DAILY
     Route: 060
  29. DEPO-ESTRADIOL [Suspect]
     Active Substance: ESTRADIOL CYPIONATE
     Indication: HORMONE REPLACEMENT THERAPY
     Dosage: 1 ML, MONTHLY
     Dates: start: 1993
  30. DEPO-ESTRADIOL [Suspect]
     Active Substance: ESTRADIOL CYPIONATE
     Dosage: 1 ML, MONTHLY
     Route: 030
     Dates: start: 20141212
  31. CURAMIN [Concomitant]
     Active Substance: HERBALS
     Dosage: UNK, DAILY
  32. LORAZEPAM. [Concomitant]
     Active Substance: LORAZEPAM
     Indication: ANXIETY
     Dosage: 1/2 - 1 TAB, DAILY AS NEEDED
     Route: 048
     Dates: start: 20150930
  33. NASACORT ALLERGY 24HR [Concomitant]
     Active Substance: TRIAMCINOLONE ACETONIDE
     Dosage: UNK, 1X/DAY (1 SPRAY IN EACH NOSTRIL)
     Route: 045
     Dates: start: 20160107
  34. OMEPRAZOLE. [Concomitant]
     Active Substance: OMEPRAZOLE
     Dosage: 20 MG, DAILY
     Route: 048
     Dates: start: 20160810

REACTIONS (2)
  - Bone pain [Not Recovered/Not Resolved]
  - Discomfort [Unknown]

NARRATIVE: CASE EVENT DATE: 1990
